APPROVED DRUG PRODUCT: BRIMONIDINE TARTRATE
Active Ingredient: BRIMONIDINE TARTRATE
Strength: 0.025%
Dosage Form/Route: SOLUTION/DROPS;OPHTHALMIC
Application: A216361 | Product #001
Applicant: DR REDDYS LABORATORIES SA
Approved: Feb 16, 2024 | RLD: No | RS: No | Type: OTC